FAERS Safety Report 6812823-X (Version None)
Quarter: 2010Q3

REPORT INFORMATION
  Report Type: 
  Country: None (occurrence: None)
  Receive Date: 20100701
  Receipt Date: 20100624
  Transmission Date: 20110219
  Serious: Yes (Hospitalization)
  Sender: FDA-Public Use
  Company Number: CZ-TEVA-238946ISR

PATIENT
  Sex: Female

DRUGS (6)
  1. METHOTREXATE [Suspect]
     Indication: RHEUMATOID ARTHRITIS
     Route: 048
     Dates: start: 19980101, end: 20091201
  2. METHOTREXATE [Suspect]
     Route: 048
     Dates: start: 20091201, end: 20091209
  3. COXTRAL [Concomitant]
     Dosage: PERMANENT MEDICATION
  4. SULFASALAZINE [Concomitant]
     Dosage: PERMANENT MEDICATION
  5. MEDROL [Concomitant]
     Dosage: PERMANENT MEDICATION
  6. FOSAVANCE [Concomitant]
     Dosage: PERMANENT MEDICATION

REACTIONS (2)
  - ACCIDENTAL OVERDOSE [None]
  - OROPHARYNGITIS FUNGAL [None]
